FAERS Safety Report 24128053 (Version 4)
Quarter: 2024Q4

REPORT INFORMATION
  Report Type: Spontaneous
  Country: JP (occurrence: JP)
  Receive Date: 20240723
  Receipt Date: 20241111
  Transmission Date: 20250115
  Serious: Yes (Hospitalization)
  Sender: JOHNSON AND JOHNSON
  Company Number: JP-JNJFOC-20240755028

PATIENT
  Age: 8 Decade
  Sex: Male

DRUGS (6)
  1. UPTRAVI [Suspect]
     Active Substance: SELEXIPAG
     Indication: Pulmonary arterial hypertension
     Route: 048
     Dates: start: 202406, end: 2024
  2. OPSUMIT [Suspect]
     Active Substance: MACITENTAN
     Indication: Pulmonary arterial hypertension
     Route: 048
     Dates: start: 2022
  3. ADEMPAS [Suspect]
     Active Substance: RIOCIGUAT
     Indication: Pulmonary arterial hypertension
     Route: 048
  4. ADEMPAS [Suspect]
     Active Substance: RIOCIGUAT
     Route: 048
  5. SPIRONOLACTONE [Concomitant]
     Active Substance: SPIRONOLACTONE
     Dosage: DOSE UNKNOWN
     Route: 048
     Dates: end: 202406
  6. SPIRONOLACTONE [Concomitant]
     Active Substance: SPIRONOLACTONE
     Dosage: DOSE UNKNOWN
     Route: 048
     Dates: start: 202407

REACTIONS (4)
  - Hospitalisation [Unknown]
  - Cardiac failure congestive [Recovered/Resolved]
  - Gynaecomastia [Unknown]
  - Labile blood pressure [Unknown]

NARRATIVE: CASE EVENT DATE: 20240601
